FAERS Safety Report 8824720 (Version 2)
Quarter: 2012Q4

REPORT INFORMATION
  Report Type: 
  Country: VE (occurrence: VE)
  Receive Date: 20121004
  Receipt Date: 20121008
  Transmission Date: 20130627
  Serious: Yes (Other)
  Sender: FDA-Public Use
  Company Number: VE-PFIZER INC-2012244883

PATIENT
  Age: 24 Year
  Sex: Female

DRUGS (1)
  1. ZOLOFT [Suspect]
     Dosage: 50 mg, 2x/day
     Route: 048
     Dates: start: 2012, end: 2012

REACTIONS (1)
  - Choking [Recovered/Resolved]
